FAERS Safety Report 8474188-X (Version None)
Quarter: 2012Q2

REPORT INFORMATION
  Report Type: 
  Country: None (occurrence: None)
  Receive Date: 20120628
  Receipt Date: 20120626
  Transmission Date: 20120825
  Serious: No
  Sender: FDA-Public Use
  Company Number: US-PFIZER INC-2012154260

PATIENT
  Sex: Female
  Weight: 81.633 kg

DRUGS (3)
  1. EFFEXOR XR [Suspect]
     Indication: DEPRESSION
     Dosage: UNK
     Route: 048
  2. LORAZEPAM [Concomitant]
     Dosage: UNK
  3. EFFEXOR XR [Suspect]
     Dosage: 225 MG (ONE CAPSULE OF 150MG AND 75MG EACH), 1X/DAY
     Route: 048
     Dates: end: 20120601

REACTIONS (2)
  - FEELING ABNORMAL [None]
  - DRUG INEFFECTIVE [None]
